FAERS Safety Report 9588337 (Version 1)
Quarter: 2013Q4

REPORT INFORMATION
  Report Type: Spontaneous
  Country: US (occurrence: US)
  Receive Date: 20131003
  Receipt Date: 20131003
  Transmission Date: 20140711
  Serious: No
  Sender: FDA-Public Use
  Company Number: US-AMGEN-USASP2012063684

PATIENT
  Sex: Female
  Weight: 102.4 kg

DRUGS (10)
  1. ENBREL [Suspect]
     Indication: PSORIATIC ARTHROPATHY
     Dosage: 50 MG, 2 TIMES/WK
     Route: 058
  2. ENBREL [Suspect]
     Indication: PSORIASIS
  3. METHOTREXATE [Concomitant]
     Dosage: 50 MG, UNK
  4. LIPITOR [Concomitant]
     Dosage: 20 MG, UNK
  5. AMITRIPTYLINE [Concomitant]
     Dosage: 10 MG, UNK
  6. ENALAPRIL [Concomitant]
     Dosage: 2.5 MG, UNK
  7. MELOXICAM [Concomitant]
     Dosage: 15 MG, UNK
  8. METFORMIN [Concomitant]
     Dosage: 500 MG, UNK
  9. APAP [Concomitant]
     Dosage: 7.5-500
  10. HYDROCODONE [Concomitant]
     Dosage: 7.5-500

REACTIONS (2)
  - Nasal congestion [Unknown]
  - Sinusitis [Unknown]
